FAERS Safety Report 8563321 (Version 2)
Quarter: 2012Q4

REPORT INFORMATION
  Report Type: 
  Country: US (occurrence: US)
  Receive Date: 20120515
  Receipt Date: 20120822
  Transmission Date: 20130627
  Serious: Yes (Disabling)
  Sender: FDA-Public Use
  Company Number: US-ELI_LILLY_AND_COMPANY-US201205001928

PATIENT
  Age: 57 Year
  Sex: Female

DRUGS (2)
  1. CYMBALTA [Suspect]
     Indication: MAJOR DEPRESSION
     Dosage: 30 mg, qd
     Route: 048
     Dates: start: 20100322
  2. CYMBALTA [Suspect]
     Dosage: 60 mg, qd

REACTIONS (3)
  - Depression [Unknown]
  - Fibromyalgia [Unknown]
  - Osteoarthritis [Unknown]
